FAERS Safety Report 18018466 (Version 1)
Quarter: 2020Q3

REPORT INFORMATION
  Report Type: Spontaneous
  Country: US (occurrence: US)
  Receive Date: 20200713
  Receipt Date: 20200713
  Transmission Date: 20201103
  Serious: Yes (Hospitalization)
  Sender: FDA-Public Use
  Company Number: None

PATIENT
  Age: 70 Year
  Sex: Female

DRUGS (22)
  1. GLMEPIRIDE [Concomitant]
  2. ADVAIR HFA [Concomitant]
     Active Substance: FLUTICASONE PROPIONATE\SALMETEROL XINAFOATE
  3. AZITHROMYCIN ANHYDROUS. [Concomitant]
     Active Substance: AZITHROMYCIN ANHYDROUS
  4. PRIMIDONE. [Concomitant]
     Active Substance: PRIMIDONE
  5. METFORMIN [Concomitant]
     Active Substance: METFORMIN HYDROCHLORIDE
  6. SIMVASTATIN. [Concomitant]
     Active Substance: SIMVASTATIN
  7. KETOCONAZOLE. [Concomitant]
     Active Substance: KETOCONAZOLE
  8. METRONIDAZOL [Concomitant]
     Active Substance: METRONIDAZOLE
  9. PROCHLORPER [Concomitant]
  10. LEVOFLOXACIN. [Concomitant]
     Active Substance: LEVOFLOXACIN
  11. LOSARTAN. [Concomitant]
     Active Substance: LOSARTAN
  12. MONTELUKAST [Concomitant]
     Active Substance: MONTELUKAST SODIUM
  13. PROPRANOLOL [Concomitant]
     Active Substance: PROPRANOLOL HYDROCHLORIDE
  14. VICTOZA [Concomitant]
     Active Substance: LIRAGLUTIDE
  15. CYCLOBENZAPR [Concomitant]
     Active Substance: CYCLOBENZAPRINE
  16. MORPHINE [Concomitant]
     Active Substance: MORPHINE
  17. IBRANCE [Suspect]
     Active Substance: PALBOCICLIB
     Indication: BREAST CANCER
     Dosage: ?          OTHER ROUTE:ORAL (21 DAYS ON, 7 OFF)?
     Dates: start: 201906
  18. ANASTROZOLE. [Concomitant]
     Active Substance: ANASTROZOLE
  19. DOXYCYCL HYC [Concomitant]
  20. FENTANYL. [Concomitant]
     Active Substance: FENTANYL
  21. PAROZETINE [Concomitant]
  22. FLUCONAZOLE. [Concomitant]
     Active Substance: FLUCONAZOLE

REACTIONS (3)
  - Product dose omission issue [None]
  - Fatigue [None]
  - Thrombosis [None]

NARRATIVE: CASE EVENT DATE: 20200703
